FAERS Safety Report 6367730-6 (Version None)
Quarter: 2009Q3

REPORT INFORMATION
  Report Type: 
  Country: None (occurrence: None)
  Receive Date: 20090921
  Receipt Date: 20090908
  Transmission Date: 20100115
  Serious: Yes (Other)
  Sender: FDA-Public Use
  Company Number: PHHY2009JP11689

PATIENT
  Sex: Female

DRUGS (11)
  1. TASIGNA [Suspect]
     Indication: CHRONIC MYELOID LEUKAEMIA
     Dosage: 400 MG/DAY
     Route: 048
     Dates: start: 20090324, end: 20090326
  2. TASIGNA [Interacting]
     Dosage: 200 MG/DAY
     Route: 048
     Dates: start: 20090327, end: 20090331
  3. VERAPAMIL HCL [Interacting]
     Indication: ARRHYTHMIA
     Dosage: 120 MG/DAY
     Route: 048
     Dates: start: 20081127
  4. HYDREA [Concomitant]
     Indication: CHRONIC MYELOID LEUKAEMIA
     Dosage: 500 MG, UNK
     Route: 048
     Dates: start: 20081223, end: 20090322
  5. HYDREA [Concomitant]
     Dosage: 100 MG, UNK
     Route: 048
  6. ASVERIN [Concomitant]
     Indication: CHRONIC MYELOID LEUKAEMIA
     Dosage: 60 MG, UNK
     Route: 048
     Dates: start: 20090323
  7. ZYLORIC [Concomitant]
     Indication: CHRONIC MYELOID LEUKAEMIA
     Dosage: 100 MG, UNK
     Route: 048
  8. GASTER [Concomitant]
     Dosage: 10 MG, UNK
     Route: 048
  9. LASIX [Concomitant]
     Dosage: 40 MG, UNK
     Route: 048
  10. URALYT [Concomitant]
     Dosage: 3 DF, UNK
     Route: 048
  11. WARFARIN SODIUM [Concomitant]
     Dosage: 2 MG, UNK
     Route: 048

REACTIONS (2)
  - DRUG INTERACTION [None]
  - ELECTROCARDIOGRAM QT PROLONGED [None]
